FAERS Safety Report 15499210 (Version 2)
Quarter: 2018Q4

REPORT INFORMATION
  Report Type: Spontaneous
  Country: AU (occurrence: AU)
  Receive Date: 20181015
  Receipt Date: 20181022
  Transmission Date: 20190205
  Serious: Yes (Other)
  Sender: FDA-Public Use
  Company Number: AU-ALEXION PHARMACEUTICALS INC.-A201813353

PATIENT
  Age: 73 Year
  Sex: Female

DRUGS (11)
  1. SOLIRIS [Suspect]
     Active Substance: ECULIZUMAB
     Indication: PAROXYSMAL NOCTURNAL HAEMOGLOBINURIA
     Dosage: UNK
     Route: 065
  2. METOPROLOL. [Concomitant]
     Active Substance: METOPROLOL
     Indication: PRODUCT USED FOR UNKNOWN INDICATION
     Dosage: 50 MG, BID
     Route: 065
  3. TAMBOCOR [Concomitant]
     Active Substance: FLECAINIDE ACETATE
     Indication: PRODUCT USED FOR UNKNOWN INDICATION
     Dosage: 50 MG, BID
     Route: 065
  4. MERSYNDOL                          /00327201/ [Concomitant]
     Active Substance: ACETAMINOPHEN\CAFFEINE\CODEINE\DOXYLAMINE
     Indication: PRODUCT USED FOR UNKNOWN INDICATION
     Dosage: 2 TABS, BID
     Route: 065
  5. PAXTINE [Concomitant]
     Active Substance: PAROXETINE
     Indication: PRODUCT USED FOR UNKNOWN INDICATION
     Dosage: 20 MG, QD
     Route: 065
  6. BRETARIS GENUAIR [Concomitant]
     Active Substance: ACLIDINIUM BROMIDE
     Indication: PRODUCT USED FOR UNKNOWN INDICATION
     Dosage: 322 MCG, QD
     Route: 065
  7. HIPREX [Concomitant]
     Active Substance: METHENAMINE HIPPURATE
     Indication: PRODUCT USED FOR UNKNOWN INDICATION
     Dosage: 1 G, QD
     Route: 065
  8. SOLIRIS [Suspect]
     Active Substance: ECULIZUMAB
     Dosage: UNK
     Route: 065
  9. CYCLOSPORIN [Concomitant]
     Active Substance: CYCLOSPORINE
     Indication: PRODUCT USED FOR UNKNOWN INDICATION
     Dosage: UNK
     Route: 065
  10. ESOMEPRAZOLE. [Concomitant]
     Active Substance: ESOMEPRAZOLE MAGNESIUM
     Indication: PRODUCT USED FOR UNKNOWN INDICATION
     Dosage: 20 MG, QD
     Route: 065
  11. FOSAMAX [Concomitant]
     Active Substance: ALENDRONATE SODIUM
     Indication: PRODUCT USED FOR UNKNOWN INDICATION
     Dosage: 70MG/140MCG QW
     Route: 065

REACTIONS (20)
  - Haemorrhage [Unknown]
  - Reticulocyte count increased [Unknown]
  - Dyspnoea [Recovering/Resolving]
  - Abdominal pain [Unknown]
  - Acquired amegakaryocytic thrombocytopenia [Unknown]
  - Dyspnoea exertional [Unknown]
  - Thrombocytopenia [Unknown]
  - Mean cell volume increased [Unknown]
  - Emphysema [Unknown]
  - Gastrooesophageal reflux disease [Unknown]
  - Contusion [Unknown]
  - Pulmonary hypertension [Unknown]
  - Haemoglobin decreased [Unknown]
  - Dysphonia [Unknown]
  - General symptom [Recovering/Resolving]
  - Chronic obstructive pulmonary disease [Unknown]
  - Anaemia [Unknown]
  - Fatigue [Unknown]
  - Polychromasia [Unknown]
  - Headache [Unknown]
